FAERS Safety Report 7388680-2 (Version None)
Quarter: 2011Q2

REPORT INFORMATION
  Report Type: 
  Country: None (occurrence: None)
  Receive Date: 20110401
  Receipt Date: 20110322
  Transmission Date: 20111010
  Serious: Yes (Hospitalization)
  Sender: FDA-Public Use
  Company Number: JP-JNJFOC-20110205599

PATIENT
  Sex: Male
  Weight: 54 kg

DRUGS (9)
  1. RHEUMATREX [Suspect]
     Indication: RHEUMATOID ARTHRITIS
     Route: 048
  2. GOLIMUMAB [Suspect]
     Indication: RHEUMATOID ARTHRITIS
     Route: 058
  3. MOHRUS TAPEL [Concomitant]
     Indication: SCIATICA
     Dosage: ^(1 PIECE/1 TIME)^
     Route: 062
  4. MOHRUS TAPEL [Concomitant]
     Indication: RHEUMATOID ARTHRITIS
     Dosage: ^(1 PIECE/1 TIME)^
     Route: 062
  5. MOHRUS TAPE [Concomitant]
     Indication: RHEUMATOID ARTHRITIS
     Dosage: ^(1 PIECE/1 TIME)^
     Route: 062
  6. MUCOSTA [Concomitant]
     Indication: GASTRITIS
     Route: 048
  7. MOHRUS TAPE [Concomitant]
     Indication: SCIATICA
     Dosage: ^(1 PIECE/1 TIME)^
     Route: 062
  8. LOXONIN [Concomitant]
     Indication: RHEUMATOID ARTHRITIS
     Route: 048
  9. GASTER D [Concomitant]
     Indication: REFLUX OESOPHAGITIS
     Route: 048

REACTIONS (2)
  - ANAEMIA [None]
  - LIVER DISORDER [None]
